FAERS Safety Report 24137238 (Version 1)
Quarter: 2024Q3

REPORT INFORMATION
  Report Type: Spontaneous
  Country: US (occurrence: None)
  Receive Date: 20240724
  Receipt Date: 20240724
  Transmission Date: 20241017
  Serious: No
  Sender: Public
  Company Number: None

PATIENT
  Age: 34 Year
  Sex: Female
  Weight: 106.2 kg

DRUGS (6)
  1. DEXAMETHASONE\NEOMYCIN\POLYMYXIN B [Suspect]
     Active Substance: DEXAMETHASONE\NEOMYCIN\POLYMYXIN B
     Indication: Hordeolum
     Dates: start: 20240724
  2. ALBUTEROL [Concomitant]
     Active Substance: ALBUTEROL
  3. TYLENOL [Concomitant]
     Active Substance: ACETAMINOPHEN
  4. NASONEX [Concomitant]
     Active Substance: MOMETASONE FUROATE
  5. MULTIVITAMIN FOR WOEMEN [Concomitant]
  6. PRE + PROBIOTIC GUMMY [Concomitant]

REACTIONS (2)
  - Eye pain [None]
  - Dry eye [None]

NARRATIVE: CASE EVENT DATE: 20240724
